FAERS Safety Report 4362975-9 (Version None)
Quarter: 2004Q2

REPORT INFORMATION
  Report Type: 
  Country: None (occurrence: None)
  Receive Date: 20040518
  Receipt Date: 20040414
  Transmission Date: 20050107
  Serious: Yes (Other)
  Sender: FDA-Public Use
  Company Number: 2004AP02671

PATIENT
  Age: 68 Year
  Sex: Female

DRUGS (1)
  1. SEROQUEL [Suspect]
     Dosage: 200 MG PO
     Route: 048

REACTIONS (1)
  - PLATELET COUNT DECREASED [None]
